FAERS Safety Report 7203643-5 (Version None)
Quarter: 2010Q4

REPORT INFORMATION
  Report Type: 
  Country: None (occurrence: None)
  Receive Date: 20101220
  Receipt Date: 20101203
  Transmission Date: 20110411
  Serious: Yes (Hospitalization)
  Sender: FDA-Public Use
  Company Number: 2010005123

PATIENT
  Age: 73 Year
  Sex: Female
  Weight: 69 kg

DRUGS (7)
  1. ERLOTINIB HYDROCHLORIDE [Suspect]
     Indication: ADENOCARCINOMA PANCREAS
     Dosage: (100 MG,QD),ORAL
     Route: 048
     Dates: start: 20100726, end: 20101117
  2. GEMCITABINE [Suspect]
     Indication: ADENOCARCINOMA PANCREAS
     Dosage: (1000 MG/M2,OVER 30 MINUTES ON DAYS 1, 8, 15),INTRAVENOUS
     Route: 042
     Dates: start: 20100726, end: 20101103
  3. CIXUTUMUMAB [Suspect]
     Indication: ADENOCARCINOMA PANCREAS
     Dosage: (6 MG/KG,OVER 60 MINUTES ON DAYS 1, 8, 15 AND 22),INTRAVENOUS
     Route: 042
     Dates: start: 20100726, end: 20101110
  4. LEVSIN (HYOSCYAMINE SULFATE) [Concomitant]
  5. LISINOPRIL [Concomitant]
  6. OXYCODONE HCL [Concomitant]
  7. OXYCONTIN [Concomitant]

REACTIONS (14)
  - ANTIBIOTIC RESISTANT STAPHYLOCOCCUS TEST POSITIVE [None]
  - CELLULITIS [None]
  - DECREASED APPETITE [None]
  - DECUBITUS ULCER [None]
  - DIARRHOEA [None]
  - FAECAL INCONTINENCE [None]
  - FAILURE TO THRIVE [None]
  - FATIGUE [None]
  - HAEMOGLOBIN DECREASED [None]
  - HYPOALBUMINAEMIA [None]
  - MUSCULAR WEAKNESS [None]
  - NAUSEA [None]
  - NIGHT SWEATS [None]
  - URINARY INCONTINENCE [None]
